FAERS Safety Report 6390939-2 (Version None)
Quarter: 2009Q4

REPORT INFORMATION
  Report Type: 
  Country: None (occurrence: None)
  Receive Date: 20091003
  Receipt Date: 20080826
  Transmission Date: 20100525
  Serious: Yes (Death)
  Sender: FDA-Public Use
  Company Number: 20097464

PATIENT
  Sex: Male

DRUGS (3)
  1. BACLOFEN [Suspect]
     Indication: MUSCLE SPASTICITY
     Dosage: 50-200 MCG, DAILY, INTRATHECAL
     Route: 037
     Dates: start: 20080117
  2. GABALON [Concomitant]
  3. CERCINE [Concomitant]

REACTIONS (1)
  - COMPLETED SUICIDE [None]
